FAERS Safety Report 22130223 (Version 1)
Quarter: 2023Q1

REPORT INFORMATION
  Report Type: Spontaneous
  Country: FR (occurrence: FR)
  Receive Date: 20230323
  Receipt Date: 20230323
  Transmission Date: 20230417
  Serious: Yes (Other)
  Sender: FDA-Public Use
  Company Number: FR-PFIZER INC-202300122856

PATIENT
  Age: 4 Year
  Sex: Female

DRUGS (2)
  1. VORICONAZOLE [Suspect]
     Active Substance: VORICONAZOLE
     Indication: Fusarium infection
     Dosage: UNK
     Route: 048
  2. AMPHOTERICIN B [Concomitant]
     Active Substance: AMPHOTERICIN B
     Indication: Fusarium infection
     Dosage: UNK
     Route: 042

REACTIONS (3)
  - Decreased appetite [Unknown]
  - Visual impairment [Unknown]
  - Sleep disorder [Unknown]
